FAERS Safety Report 12420138 (Version 1)
Quarter: 2016Q2

REPORT INFORMATION
  Report Type: Spontaneous
  Country: US (occurrence: US)
  Receive Date: 20160531
  Receipt Date: 20160531
  Transmission Date: 20160815
  Serious: No
  Sender: FDA-Public Use
  Company Number: US-GLAXOSMITHKLINE-US2016067852

PATIENT
  Age: 82 Year
  Sex: Female

DRUGS (10)
  1. ADVAIR DISKUS [Suspect]
     Active Substance: FLUTICASONE PROPIONATE\SALMETEROL XINAFOATE
     Indication: WHEEZING
     Dosage: 1 PUFF(S), BID
     Route: 055
     Dates: start: 2015
  2. VITAMIN B12 [Concomitant]
     Active Substance: CYANOCOBALAMIN
  3. LORAZEPAM. [Concomitant]
     Active Substance: LORAZEPAM
  4. BUPROPION. [Suspect]
     Active Substance: BUPROPION
     Indication: PRODUCT USED FOR UNKNOWN INDICATION
  5. METAMUCIL [Concomitant]
     Active Substance: PLANTAGO SEED
  6. ESCITALOPRAM [Concomitant]
     Active Substance: ESCITALOPRAM OXALATE
  7. VENTOLIN HFA [Suspect]
     Active Substance: ALBUTEROL SULFATE
     Indication: WHEEZING
     Dosage: 2 PUFF(S), BID
     Route: 055
     Dates: start: 201604
  8. CALCIUM [Concomitant]
     Active Substance: CALCIUM
  9. FERROUS SULFATE. [Concomitant]
     Active Substance: FERROUS SULFATE
  10. VITAMIN D3 [Concomitant]
     Active Substance: CHOLECALCIFEROL

REACTIONS (7)
  - Swollen tongue [Recovering/Resolving]
  - Rash [Unknown]
  - Wheezing [Not Recovered/Not Resolved]
  - Aphthous ulcer [Recovered/Resolved]
  - Drug ineffective [Not Recovered/Not Resolved]
  - Lip pain [Not Recovered/Not Resolved]
  - Urticaria [Unknown]

NARRATIVE: CASE EVENT DATE: 2015
